FAERS Safety Report 14813431 (Version 3)
Quarter: 2018Q2

REPORT INFORMATION
  Report Type: Report from Study
  Country: None (occurrence: US)
  Receive Date: 20180426
  Receipt Date: 20180626
  Transmission Date: 20180711
  Serious: Yes (Hospitalization, Other)
  Sender: FDA-Public Use
  Company Number: US-ABBVIE-18K-163-2271223-00

PATIENT
  Age: 79 Year
  Sex: Female

DRUGS (2)
  1. HUMIRA [Suspect]
     Active Substance: ADALIMUMAB
     Indication: RHEUMATOID ARTHRITIS
     Route: 058
     Dates: start: 20170620, end: 2018
  2. HUMIRA [Suspect]
     Active Substance: ADALIMUMAB
     Route: 058
     Dates: start: 20180509

REACTIONS (32)
  - Skin discolouration [Unknown]
  - Dehydration [Recovered/Resolved]
  - Increased viscosity of bronchial secretion [Unknown]
  - Neck pain [Not Recovered/Not Resolved]
  - Dizziness [Unknown]
  - Rheumatoid arthritis [Not Recovered/Not Resolved]
  - Headache [Unknown]
  - Poor quality sleep [Not Recovered/Not Resolved]
  - Alopecia [Not Recovered/Not Resolved]
  - Haemangioma of skin [Not Recovered/Not Resolved]
  - Haematochezia [Unknown]
  - Musculoskeletal stiffness [Not Recovered/Not Resolved]
  - Arthralgia [Not Recovered/Not Resolved]
  - Foot deformity [Not Recovered/Not Resolved]
  - Finger deformity [Not Recovered/Not Resolved]
  - Gastrointestinal bacterial infection [Unknown]
  - Vascular pain [Unknown]
  - Bile acid malabsorption [Unknown]
  - Skin papilloma [Unknown]
  - Varicose vein [Not Recovered/Not Resolved]
  - Pain in extremity [Not Recovered/Not Resolved]
  - Productive cough [Unknown]
  - Weight decreased [Not Recovered/Not Resolved]
  - Musculoskeletal disorder [Unknown]
  - Amnesia [Unknown]
  - Diverticulitis [Recovering/Resolving]
  - Rotator cuff syndrome [Not Recovered/Not Resolved]
  - Renal impairment [Unknown]
  - Injection site bruising [Recovered/Resolved]
  - Injection site bruising [Recovering/Resolving]
  - Fatigue [Not Recovered/Not Resolved]
  - Loss of personal independence in daily activities [Not Recovered/Not Resolved]

NARRATIVE: CASE EVENT DATE: 201706
